FAERS Safety Report 14652514 (Version 1)
Quarter: 2018Q1

REPORT INFORMATION
  Report Type: Spontaneous
  Country: US (occurrence: US)
  Receive Date: 20180316
  Receipt Date: 20180316
  Transmission Date: 20180509
  Serious: Yes (Death, Hospitalization)
  Sender: FDA-Public Use
  Company Number: None

PATIENT
  Age: 21 Year
  Sex: Male
  Weight: 75.3 kg

DRUGS (4)
  1. DEXAMETHASONE. [Suspect]
     Active Substance: DEXAMETHASONE
     Dates: end: 20180309
  2. VINCRISTINE SULFATE. [Suspect]
     Active Substance: VINCRISTINE SULFATE
     Dates: end: 20180308
  3. MITOXANTRONE HYDROCHLORIDE. [Suspect]
     Active Substance: MITOXANTRONE HYDROCHLORIDE
     Dates: end: 20180307
  4. METHOTREXATE. [Suspect]
     Active Substance: METHOTREXATE
     Dates: end: 20180307

REACTIONS (14)
  - Tongue paralysis [None]
  - Aphasia [None]
  - Depressed level of consciousness [None]
  - Leukocytosis [None]
  - Neurological decompensation [None]
  - Respiratory distress [None]
  - Facial paralysis [None]
  - Platelet count decreased [None]
  - Intraventricular haemorrhage [None]
  - Blood fibrinogen decreased [None]
  - Dysarthria [None]
  - Cerebral haemorrhage [None]
  - Hemiparesis [None]
  - Haemoglobin decreased [None]

NARRATIVE: CASE EVENT DATE: 20180309
